FAERS Safety Report 5731717-4 (Version None)
Quarter: 2008Q2

REPORT INFORMATION
  Report Type: 
  Country: None (occurrence: None)
  Receive Date: 20080508
  Receipt Date: 20080508
  Transmission Date: 20081010
  Serious: Yes (Hospitalization)
  Sender: FDA-Public Use
  Company Number: None

PATIENT
  Sex: Female

DRUGS (2)
  1. HEPARIN [Suspect]
     Indication: PELVIC PAIN
     Dosage: 20,000 UNITS ONCE INTRA-BLADDER
     Dates: start: 20080109
  2. PYRIDIUM 200MG X 1 WARNER-CHILCOTT [Suspect]
     Indication: CYSTITIS
     Dosage: 200MG ONCE ORAL
     Route: 048
     Dates: start: 20080109

REACTIONS (3)
  - CHEST PAIN [None]
  - DYSPNOEA [None]
  - HYPERTENSION [None]
